FAERS Safety Report 8217457 (Version 2)
Quarter: 2012Q4

REPORT INFORMATION
  Report Type: 
  Country: JP (occurrence: JP)
  Receive Date: 20111101
  Receipt Date: 20121227
  Transmission Date: 20130627
  Serious: Yes (Hospitalization, Other)
  Sender: FDA-Public Use
  Company Number: JP-ELI_LILLY_AND_COMPANY-JP201108008681

PATIENT
  Age: 84 Year
  Sex: Female

DRUGS (2)
  1. FORTEO [Suspect]
     Indication: OSTEOPOROSIS
     Dosage: UNK
     Route: 058
     Dates: start: 20110819
  2. ANTIHYPERTENSIVES [Concomitant]
     Route: 048

REACTIONS (3)
  - Cardiac disorder [Unknown]
  - Breast cancer recurrent [Unknown]
  - Vertigo [Unknown]
